FAERS Safety Report 8272359-9 (Version None)
Quarter: 2012Q1

REPORT INFORMATION
  Report Type: 
  Country: None (occurrence: None)
  Receive Date: 20120321
  Receipt Date: 20110706
  Transmission Date: 20120608
  Serious: No
  Sender: FDA-Public Use
  Company Number: 2011SP031538

PATIENT
  Age: 63 Year
  Sex: Female

DRUGS (6)
  1. PEG-INTRON [Suspect]
     Indication: HEPATITIS C
     Dosage: ;QW;SC
     Route: 058
     Dates: start: 20100101
  2. PREDNISONE [Concomitant]
  3. LEVOTHROID [Concomitant]
  4. RIBAVIRIN [Suspect]
     Indication: PRODUCT USED FOR UNKNOWN INDICATION
  5. PRILOSEC [Concomitant]
  6. FOSAMAX [Concomitant]

REACTIONS (4)
  - ALOPECIA [None]
  - OEDEMA PERIPHERAL [None]
  - SKIN ULCER [None]
  - RASH [None]
